FAERS Safety Report 17136542 (Version 1)
Quarter: 2019Q4

REPORT INFORMATION
  Report Type: Spontaneous
  Country: US (occurrence: US)
  Receive Date: 20191210
  Receipt Date: 20191210
  Transmission Date: 20200122
  Serious: No
  Sender: FDA-Public Use
  Company Number: US-SA-2019SA340468

PATIENT
  Age: 80 Year
  Sex: Male

DRUGS (1)
  1. TOUJEO [Suspect]
     Active Substance: INSULIN GLARGINE
     Dosage: 16 U, HS
     Route: 065

REACTIONS (3)
  - Wrong technique in device usage process [Unknown]
  - Intentional product use issue [Unknown]
  - Wrong technique in product usage process [Unknown]
